FAERS Safety Report 5333624-8 (Version None)
Quarter: 2007Q1

REPORT INFORMATION
  Report Type: 
  Country: None (occurrence: None)
  Receive Date: 20070306
  Receipt Date: 20060221
  Transmission Date: 20070707
  Serious: Yes (Hospitalization)
  Sender: FDA-Public Use
  Company Number: A03200600985

PATIENT
  Age: 61 Year
  Sex: Female
  Weight: 58.5 kg

DRUGS (4)
  1. PLAVIX [Suspect]
     Dosage: 75 MG ONCE - ORAL
     Route: 048
     Dates: start: 20050701, end: 20050701
  2. TOPIRAMATE [Concomitant]
  3. LEVOTHYROXINE SODIUM [Concomitant]
  4. LANSOPRAZOLE [Concomitant]

REACTIONS (3)
  - DIZZINESS [None]
  - HEADACHE [None]
  - HYPERHIDROSIS [None]
